FAERS Safety Report 8904560 (Version 1)
Quarter: 2012Q4

REPORT INFORMATION
  Report Type: 
  Country: DE (occurrence: DE)
  Receive Date: 20121112
  Receipt Date: 20121112
  Transmission Date: 20130627
  Serious: Yes (Other)
  Sender: FDA-Public Use
  Company Number: DE-TEVA-367688GER

PATIENT
  Sex: Female
  Weight: 2.55 kg

DRUGS (2)
  1. BISOPROLOL [Suspect]
     Route: 064
  2. FEMIBION SCHWANGERSCHAFT 1 [Concomitant]
     Route: 064

REACTIONS (2)
  - Atrial septal defect [Unknown]
  - Small for dates baby [Unknown]
